FAERS Safety Report 9064446 (Version 1)
Quarter: 2013Q1

REPORT INFORMATION
  Report Type: Spontaneous
  Country: AR (occurrence: AR)
  Receive Date: 20130213
  Receipt Date: 20130213
  Transmission Date: 20140127
  Serious: Yes (Hospitalization, Other)
  Sender: FDA-Public Use
  Company Number: AR-009507513-1212ARG010437

PATIENT
  Sex: Male
  Weight: 83 kg

DRUGS (4)
  1. VICTRELIS [Suspect]
     Indication: HEPATITIS C
     Dosage: 2400 MG, DAILY
     Route: 048
     Dates: start: 20121015, end: 20121212
  2. PROPRANOLOL HYDROCHLORIDE [Concomitant]
     Indication: GASTROOESOPHAGEAL VARICEAL HAEMORRHAGE PROPHYLAXIS
     Dosage: UNK
     Route: 048
     Dates: start: 2009
  3. PEGINTERFERON ALFA-2A [Suspect]
     Indication: HEPATITIS C
     Dosage: 90 MICROGRAM, QW
     Route: 058
     Dates: start: 20120921, end: 20121212
  4. RIBAVIRIN [Suspect]
     Dosage: 800 MG, UNK
     Route: 048
     Dates: start: 20120921, end: 20121212

REACTIONS (5)
  - Syncope [Recovered/Resolved]
  - Head injury [Recovered/Resolved]
  - Syncope [Recovered/Resolved]
  - Loss of consciousness [Recovered/Resolved]
  - Loss of consciousness [Recovered/Resolved]
